FAERS Safety Report 16114220 (Version 2)
Quarter: 2019Q2

REPORT INFORMATION
  Report Type: Spontaneous
  Country: CH (occurrence: CH)
  Receive Date: 20190325
  Receipt Date: 20190415
  Transmission Date: 20190711
  Serious: Yes (Other)
  Sender: FDA-Public Use
  Company Number: CH-AMREGENT-20190526

PATIENT
  Sex: Male
  Weight: 102 kg

DRUGS (9)
  1. BURGER STEIN ZINC GLUCONATE [Concomitant]
     Dosage: 60MG (30MG, 2 IN 1 D)
     Route: 048
     Dates: start: 20181019
  2. VITAMIN A [Concomitant]
     Active Substance: VITAMIN A
     Dosage: 1 IN 1 D
     Route: 065
     Dates: start: 20181019
  3. MULTIVITAMIN AND OLIGOELEMENTS [Concomitant]
     Dosage: 1 IN 1 D
     Route: 065
     Dates: start: 20181019
  4. VITAMIN D3 [Concomitant]
     Active Substance: CHOLECALCIFEROL
     Dosage: 300000 IU/ML, 1 IN 3 M
     Route: 065
     Dates: start: 20180108
  5. VITARUBIN [Concomitant]
     Active Substance: CYANOCOBALAMIN
     Dosage: 1000 MCG/ML, 1 IN 1 M
     Route: 065
     Dates: start: 20180108
  6. CALCIMAGOND3 [Concomitant]
     Dosage: 500/800 (3 IN 1 D)
     Route: 048
     Dates: start: 20190115
  7. BECOZYM FORTE [Concomitant]
     Dosage: 2 IN 1 WK
     Route: 048
     Dates: start: 20181019
  8. FERINJECT [Suspect]
     Active Substance: FERRIC CARBOXYMALTOSE
     Dosage: 1000 MG, 1 TOTAL
     Route: 041
  9. APROVEL [Concomitant]
     Active Substance: IRBESARTAN
     Dosage: 150 MG, 1 IN 1 D
     Route: 048
     Dates: start: 20190108

REACTIONS (3)
  - Drug intolerance [Recovered/Resolved]
  - Malaise [Unknown]
  - Circulatory collapse [Unknown]
